FAERS Safety Report 11612434 (Version 2)
Quarter: 2015Q4

REPORT INFORMATION
  Report Type: Spontaneous
  Country: US (occurrence: US)
  Receive Date: 20151008
  Receipt Date: 20151111
  Transmission Date: 20160304
  Serious: Yes (Hospitalization)
  Sender: FDA-Public Use
  Company Number: US-JNJFOC-20150910951

PATIENT
  Age: 65 Year
  Sex: Female

DRUGS (11)
  1. TRAMADOL. [Concomitant]
     Active Substance: TRAMADOL
     Route: 061
  2. TRIAMTERENE AND HYDROCHLOROTHIAZIDE [Concomitant]
     Active Substance: HYDROCHLOROTHIAZIDE\TRIAMTERENE
     Route: 065
     Dates: start: 2008
  3. XARELTO [Suspect]
     Active Substance: RIVAROXABAN
     Indication: EMBOLISM
     Route: 048
     Dates: start: 20120907, end: 20140228
  4. LIPITOR [Concomitant]
     Active Substance: ATORVASTATIN CALCIUM
     Route: 061
     Dates: start: 2005
  5. LORAZEPAM. [Concomitant]
     Active Substance: LORAZEPAM
     Route: 061
  6. ATENOLOL. [Concomitant]
     Active Substance: ATENOLOL
     Route: 065
     Dates: start: 2003
  7. XARELTO [Suspect]
     Active Substance: RIVAROXABAN
     Indication: CEREBROVASCULAR ACCIDENT PROPHYLAXIS
     Route: 048
     Dates: start: 20120907, end: 20140228
  8. XARELTO [Suspect]
     Active Substance: RIVAROXABAN
     Indication: ATRIAL FIBRILLATION
     Route: 048
     Dates: start: 20120907, end: 20140228
  9. ATORVASTATIN [Concomitant]
     Active Substance: ATORVASTATIN
     Route: 061
  10. SOTALOL. [Concomitant]
     Active Substance: SOTALOL
     Route: 061
  11. METROGEL [Concomitant]
     Active Substance: METRONIDAZOLE
     Route: 061

REACTIONS (3)
  - Haemorrhagic anaemia [Unknown]
  - Rectal haemorrhage [Unknown]
  - Epistaxis [Unknown]

NARRATIVE: CASE EVENT DATE: 20140214
